FAERS Safety Report 23321669 (Version 2)
Quarter: 2024Q1

REPORT INFORMATION
  Report Type: Spontaneous
  Country: FR (occurrence: FR)
  Receive Date: 20231220
  Receipt Date: 20240129
  Transmission Date: 20240410
  Serious: Yes (Other)
  Sender: FDA-Public Use
  Company Number: FR-BIOVITRUM-2023-FR-020991

PATIENT
  Sex: Female

DRUGS (2)
  1. KINERET [Suspect]
     Active Substance: ANAKINRA
     Indication: Still^s disease
  2. CYCLOSPORINE [Suspect]
     Active Substance: CYCLOSPORINE
     Indication: Product used for unknown indication

REACTIONS (2)
  - Drug reaction with eosinophilia and systemic symptoms [Recovering/Resolving]
  - Hepatitis acute [Recovered/Resolved]

NARRATIVE: CASE EVENT DATE: 20210220
